FAERS Safety Report 10045464 (Version 2)
Quarter: 2014Q2

REPORT INFORMATION
  Report Type: Report from Study
  Country: AR (occurrence: AR)
  Receive Date: 20140328
  Receipt Date: 20140502
  Transmission Date: 20141212
  Serious: Yes (Hospitalization, Other)
  Sender: FDA-Public Use
  Company Number: AR-BRISTOL-MYERS SQUIBB COMPANY-20548038

PATIENT
  Age: 70 Year
  Sex: Female

DRUGS (1)
  1. ABATACEPT SUBQ INJECTION 125MG/ML [Suspect]
     Dosage: INTERRUPTED ON 25-NOV-2013
     Route: 058
     Dates: start: 20130805

REACTIONS (2)
  - Lung disorder [Recovering/Resolving]
  - Viral infection [Recovering/Resolving]
